FAERS Safety Report 18758464 (Version 1)
Quarter: 2021Q1

REPORT INFORMATION
  Report Type: Spontaneous
  Country: US (occurrence: US)
  Receive Date: 20210119
  Receipt Date: 20210119
  Transmission Date: 20210419
  Serious: Yes (Hospitalization)
  Sender: FDA-Public Use
  Company Number: US-OTSUKA-2020_027722AA

PATIENT
  Sex: Female
  Weight: 136.05 kg

DRUGS (2)
  1. INQOVI [Suspect]
     Active Substance: CEDAZURIDINE\DECITABINE
     Indication: MYELODYSPLASTIC SYNDROME
     Dosage: 135 MG, QD (1?5 OF EACH 28 DAYS CYCLE)
     Route: 065
     Dates: start: 20201023
  2. INQOVI [Suspect]
     Active Substance: CEDAZURIDINE\DECITABINE
     Indication: NON-HODGKIN^S LYMPHOMA

REACTIONS (2)
  - Fluid retention [Unknown]
  - Nausea [Unknown]
